FAERS Safety Report 12710363 (Version 1)
Quarter: 2016Q3

REPORT INFORMATION
  Report Type: Report from Study
  Country: DE (occurrence: DE)
  Receive Date: 20160902
  Receipt Date: 20160902
  Transmission Date: 20161109
  Serious: Yes (Other)
  Sender: FDA-Public Use
  Company Number: DE-ABBVIE-16K-062-1716303-00

PATIENT
  Age: 45 Year
  Sex: Male

DRUGS (1)
  1. HUMIRA [Suspect]
     Active Substance: ADALIMUMAB
     Indication: PSORIASIS
     Route: 058
     Dates: start: 2011, end: 201512

REACTIONS (4)
  - Periostitis [Recovered/Resolved]
  - Tendonitis [Recovered/Resolved]
  - Pain in extremity [Recovered/Resolved]
  - Neuritis [Recovered/Resolved]

NARRATIVE: CASE EVENT DATE: 20151223
